FAERS Safety Report 6502715-8 (Version None)
Quarter: 2009Q4

REPORT INFORMATION
  Report Type: 
  Country: None (occurrence: None)
  Receive Date: 20091217
  Receipt Date: 20091210
  Transmission Date: 20100525
  Serious: Yes (Life-Threatening, Hospitalization, Other)
  Sender: FDA-Public Use
  Company Number: ES-BRISTOL-MYERS SQUIBB COMPANY-14890982

PATIENT
  Age: 39 Year
  Sex: Male

DRUGS (5)
  1. SUSTIVA [Suspect]
     Indication: HIV INFECTION
     Dosage: TAKEN 90 CAPS
     Route: 048
     Dates: start: 20090730, end: 20090730
  2. KALETRA [Suspect]
     Indication: HIV INFECTION
     Route: 048
     Dates: start: 20090701, end: 20090729
  3. LEDERFOLINE [Suspect]
     Indication: ANTIBIOTIC PROPHYLAXIS
     Route: 048
     Dates: start: 20090701, end: 20090730
  4. SEPTRIN FORTE [Suspect]
     Indication: ANTIBIOTIC PROPHYLAXIS
     Route: 048
     Dates: start: 20090701, end: 20090730
  5. TRUVADA [Suspect]
     Indication: HIV INFECTION
     Route: 048
     Dates: start: 20090701, end: 20090730

REACTIONS (7)
  - DIAPHRAGMATIC INJURY [None]
  - HAEMOTHORAX [None]
  - PSYCHOMOTOR HYPERACTIVITY [None]
  - RIB FRACTURE [None]
  - SPEECH DISORDER [None]
  - SUICIDE ATTEMPT [None]
  - TRAUMATIC LIVER INJURY [None]
